FAERS Safety Report 6163694-9 (Version None)
Quarter: 2009Q2

REPORT INFORMATION
  Report Type: 
  Country: None (occurrence: None)
  Receive Date: 20090422
  Receipt Date: 20090421
  Transmission Date: 20091009
  Serious: Yes (Death)
  Sender: FDA-Public Use
  Company Number: CA-B.I. PHARMACEUTICALS,INC./RIDGEFIELD-2009-CN-00294CN

PATIENT
  Sex: Female

DRUGS (4)
  1. CATAPRES [Suspect]
     Indication: PAIN MANAGEMENT
     Route: 037
     Dates: start: 20090120
  2. BUPIVACAINE [Concomitant]
     Route: 037
  3. MORPHINE [Concomitant]
     Route: 037
  4. ANALGESICS [Concomitant]
     Route: 051

REACTIONS (1)
  - HEPATIC FAILURE [None]
